FAERS Safety Report 18636046 (Version 2)
Quarter: 2025Q3

REPORT INFORMATION
  Report Type: Spontaneous
  Country: EU (occurrence: EU)
  Receive Date: 20201218
  Receipt Date: 20250709
  Transmission Date: 20251021
  Serious: Yes (Hospitalization, Other)
  Sender: MYLAN
  Company Number: EU-MERCK HEALTHCARE KGAA-9198326

PATIENT
  Age: 79 Year
  Sex: Male

DRUGS (48)
  1. METFORMIN [Suspect]
     Active Substance: METFORMIN HYDROCHLORIDE
     Indication: Type 2 diabetes mellitus
  2. METFORMIN [Suspect]
     Active Substance: METFORMIN HYDROCHLORIDE
     Route: 065
  3. METFORMIN [Suspect]
     Active Substance: METFORMIN HYDROCHLORIDE
     Route: 065
  4. METFORMIN [Suspect]
     Active Substance: METFORMIN HYDROCHLORIDE
  5. ATORVASTATIN [Suspect]
     Active Substance: ATORVASTATIN
     Indication: Product used for unknown indication
  6. ATORVASTATIN [Suspect]
     Active Substance: ATORVASTATIN
     Route: 065
  7. ATORVASTATIN [Suspect]
     Active Substance: ATORVASTATIN
     Route: 065
  8. ATORVASTATIN [Suspect]
     Active Substance: ATORVASTATIN
  9. EPLERENONE [Suspect]
     Active Substance: EPLERENONE
     Indication: Product used for unknown indication
  10. EPLERENONE [Suspect]
     Active Substance: EPLERENONE
     Route: 065
  11. EPLERENONE [Suspect]
     Active Substance: EPLERENONE
     Route: 065
  12. EPLERENONE [Suspect]
     Active Substance: EPLERENONE
  13. ASPIRIN [Suspect]
     Active Substance: ASPIRIN
     Indication: Product used for unknown indication
  14. ASPIRIN [Suspect]
     Active Substance: ASPIRIN
     Route: 065
  15. ASPIRIN [Suspect]
     Active Substance: ASPIRIN
     Route: 065
  16. ASPIRIN [Suspect]
     Active Substance: ASPIRIN
  17. BISOPROLOL [Suspect]
     Active Substance: BISOPROLOL
     Indication: Cardiac failure
  18. BISOPROLOL [Suspect]
     Active Substance: BISOPROLOL
     Route: 065
  19. BISOPROLOL [Suspect]
     Active Substance: BISOPROLOL
     Route: 065
  20. BISOPROLOL [Suspect]
     Active Substance: BISOPROLOL
  21. FUROSEMIDE [Suspect]
     Active Substance: FUROSEMIDE
     Indication: Product used for unknown indication
  22. FUROSEMIDE [Suspect]
     Active Substance: FUROSEMIDE
     Route: 042
  23. FUROSEMIDE [Suspect]
     Active Substance: FUROSEMIDE
     Route: 042
  24. FUROSEMIDE [Suspect]
     Active Substance: FUROSEMIDE
  25. DEXTROSE [Concomitant]
     Active Substance: DEXTROSE MONOHYDRATE
     Indication: Product used for unknown indication
  26. DEXTROSE [Concomitant]
     Active Substance: DEXTROSE MONOHYDRATE
     Route: 065
  27. DEXTROSE [Concomitant]
     Active Substance: DEXTROSE MONOHYDRATE
     Route: 065
  28. DEXTROSE [Concomitant]
     Active Substance: DEXTROSE MONOHYDRATE
  29. RAMIPRIL [Concomitant]
     Active Substance: RAMIPRIL
     Indication: Product used for unknown indication
  30. RAMIPRIL [Concomitant]
     Active Substance: RAMIPRIL
  31. RAMIPRIL [Concomitant]
     Active Substance: RAMIPRIL
     Route: 065
  32. RAMIPRIL [Concomitant]
     Active Substance: RAMIPRIL
     Route: 065
  33. RAMIPRIL [Concomitant]
     Active Substance: RAMIPRIL
  34. RAMIPRIL [Concomitant]
     Active Substance: RAMIPRIL
  35. RAMIPRIL [Concomitant]
     Active Substance: RAMIPRIL
     Route: 065
  36. RAMIPRIL [Concomitant]
     Active Substance: RAMIPRIL
     Route: 065
  37. SODIUM CHLORIDE [Concomitant]
     Active Substance: SODIUM CHLORIDE
     Indication: Product used for unknown indication
  38. SODIUM CHLORIDE [Concomitant]
     Active Substance: SODIUM CHLORIDE
     Route: 065
  39. SODIUM CHLORIDE [Concomitant]
     Active Substance: SODIUM CHLORIDE
     Route: 065
  40. SODIUM CHLORIDE [Concomitant]
     Active Substance: SODIUM CHLORIDE
  41. GLICLAZIDE [Concomitant]
     Active Substance: GLICLAZIDE
     Indication: Product used for unknown indication
  42. GLICLAZIDE [Concomitant]
     Active Substance: GLICLAZIDE
     Route: 065
  43. GLICLAZIDE [Concomitant]
     Active Substance: GLICLAZIDE
     Route: 065
  44. GLICLAZIDE [Concomitant]
     Active Substance: GLICLAZIDE
  45. INSULIN NOS [Concomitant]
     Active Substance: INSULIN NOS
     Indication: Product used for unknown indication
  46. INSULIN NOS [Concomitant]
     Active Substance: INSULIN NOS
     Route: 065
  47. INSULIN NOS [Concomitant]
     Active Substance: INSULIN NOS
     Route: 065
  48. INSULIN NOS [Concomitant]
     Active Substance: INSULIN NOS

REACTIONS (8)
  - Blood pressure decreased [Unknown]
  - Hypovolaemia [Unknown]
  - Acute kidney injury [Unknown]
  - Ischaemic stroke [Unknown]
  - Cardiac failure [Unknown]
  - Hyperglycaemia [Unknown]
  - Brain oedema [Unknown]
  - Therapeutic response decreased [Unknown]
